FAERS Safety Report 9364495 (Version 1)
Quarter: 2013Q2

REPORT INFORMATION
  Report Type: Spontaneous
  Country: JP (occurrence: JP)
  Receive Date: 20130624
  Receipt Date: 20130624
  Transmission Date: 20140414
  Serious: Yes (Other)
  Sender: FDA-Public Use
  Company Number: PHHY2013JP062673

PATIENT
  Age: 36 Year
  Sex: Female

DRUGS (1)
  1. ACETYLSALICYLIC ACID [Suspect]
     Indication: ABORTION SPONTANEOUS

REACTIONS (6)
  - Hepatotoxicity [Recovered/Resolved]
  - Fatigue [Recovered/Resolved]
  - Jaundice [Recovered/Resolved]
  - Hyperbilirubinaemia [Recovered/Resolved]
  - Hepatic enzyme increased [Recovered/Resolved]
  - Maternal exposure during pregnancy [Unknown]
